FAERS Safety Report 24857214 (Version 3)
Quarter: 2025Q1

REPORT INFORMATION
  Report Type: Spontaneous
  Country: US (occurrence: US)
  Receive Date: 20250117
  Receipt Date: 20250327
  Transmission Date: 20250408
  Serious: No
  Sender: PFIZER
  Company Number: US-PFIZER INC-202101202138

PATIENT
  Age: 60 Year
  Sex: Female
  Weight: 53.968 kg

DRUGS (1)
  1. ESTRING [Suspect]
     Active Substance: ESTRADIOL
     Indication: Vulvovaginal dryness

REACTIONS (4)
  - Patient-device incompatibility [Unknown]
  - Device defective [Unknown]
  - Illness [Unknown]
  - Device issue [Unknown]
